FAERS Safety Report 12548208 (Version 1)
Quarter: 2016Q3

REPORT INFORMATION
  Report Type: Spontaneous
  Country: US (occurrence: US)
  Receive Date: 20160712
  Receipt Date: 20160712
  Transmission Date: 20161109
  Serious: No
  Sender: FDA-Public Use
  Company Number: US-PFIZER INC-2016319438

PATIENT
  Sex: Female

DRUGS (1)
  1. XANAX [Suspect]
     Active Substance: ALPRAZOLAM
     Indication: SLEEP DISORDER
     Dosage: 4 MG, 1X/DAY (2 2MG TABLETS ONCE NIGHTLY)

REACTIONS (3)
  - Drug ineffective [Unknown]
  - Abnormal dreams [Unknown]
  - Cerebral disorder [Unknown]
